FAERS Safety Report 9520461 (Version 2)
Quarter: 2013Q3

REPORT INFORMATION
  Report Type: Spontaneous
  Country: US (occurrence: US)
  Receive Date: 20130912
  Receipt Date: 20130912
  Transmission Date: 20140515
  Serious: Yes (Other)
  Sender: FDA-Public Use
  Company Number: US-MYLANLABS-2013S1019857

PATIENT
  Age: 28 Year
  Sex: Male
  Weight: 86.18 kg

DRUGS (1)
  1. EPIPEN JR [Suspect]
     Route: 030
     Dates: start: 20130903, end: 20130903

REACTIONS (3)
  - Accidental exposure to product [Recovered/Resolved]
  - Injection site pallor [Recovered/Resolved]
  - Expired drug administered [Recovered/Resolved]
